FAERS Safety Report 8989119 (Version 1)
Quarter: 2012Q4

REPORT INFORMATION
  Report Type: 
  Country: CN (occurrence: CN)
  Receive Date: 20121228
  Receipt Date: 20121228
  Transmission Date: 20130627
  Serious: Yes (Other)
  Sender: FDA-Public Use
  Company Number: CN-ASTELLAS-2012US012714

PATIENT
  Age: 53 Year
  Sex: Male

DRUGS (1)
  1. TARCEVA [Suspect]
     Indication: LUNG ADENOCARCINOMA
     Dosage: 150 mg, UID/QD
     Route: 048

REACTIONS (4)
  - Eczema asteatotic [Recovered/Resolved]
  - Leukocytoclastic vasculitis [Recovered/Resolved]
  - Rash follicular [Recovered/Resolved]
  - Paronychia [Recovered/Resolved]
